FAERS Safety Report 4526861-3 (Version None)
Quarter: 2004Q4

REPORT INFORMATION
  Report Type: 
  Country: None (occurrence: None)
  Receive Date: 20041213
  Receipt Date: 20041129
  Transmission Date: 20050328
  Serious: Yes (Other)
  Sender: FDA-Public Use
  Company Number: 2002092475FR

PATIENT
  Age: 67 Year
  Sex: Male

DRUGS (5)
  1. LATANOPROST [Suspect]
     Indication: GLAUCOMA
     Dosage: OPHTHALMIC
     Route: 047
     Dates: start: 20010426
  2. TIMOLOL MALEATE [Concomitant]
  3. CARTEOL (BENZALKONIUM CHLORIDE, CARTEOLOL HYDROCHLORIDE) [Concomitant]
  4. ACETAZOLAMIDE [Concomitant]
  5. COSOPT [Concomitant]

REACTIONS (6)
  - EROSIVE BALANITIS [None]
  - GENITAL RASH [None]
  - LICHEN PLANUS [None]
  - NECROSIS [None]
  - PARAKERATOSIS [None]
  - TOXIC SKIN ERUPTION [None]
